FAERS Safety Report 14308971 (Version 1)
Quarter: 2017Q4

REPORT INFORMATION
  Report Type: Spontaneous
  Country: US (occurrence: US)
  Receive Date: 20171219
  Receipt Date: 20171219
  Transmission Date: 20180321
  Serious: Yes (Other)
  Sender: FDA-Public Use
  Company Number: None

PATIENT
  Age: 80 Year
  Sex: Male

DRUGS (1)
  1. EYLEA [Suspect]
     Active Substance: AFLIBERCEPT
     Indication: MACULAR DEGENERATION
     Dosage: 2MG MONTHLY INTRAVITREAL
     Dates: start: 20160119, end: 20170818

REACTIONS (7)
  - Vitreous floaters [None]
  - Pain [None]
  - Blindness [None]
  - Post procedural complication [None]
  - Eye inflammation [None]
  - Vitreous haze [None]
  - Product quality issue [None]

NARRATIVE: CASE EVENT DATE: 20170818
